APPROVED DRUG PRODUCT: TRAZODONE HYDROCHLORIDE
Active Ingredient: TRAZODONE HYDROCHLORIDE
Strength: 50MG
Dosage Form/Route: TABLET;ORAL
Application: A071523 | Product #001 | TE Code: AB
Applicant: TEVA PHARMACEUTICALS USA INC
Approved: Dec 11, 1987 | RLD: No | RS: No | Type: RX